FAERS Safety Report 6523781-X (Version None)
Quarter: 2009Q4

REPORT INFORMATION
  Report Type: 
  Country: None (occurrence: None)
  Receive Date: 20091231
  Receipt Date: 20091224
  Transmission Date: 20100525
  Serious: Yes (Other)
  Sender: FDA-Public Use
  Company Number: TR-JNJFOC-20080505131

PATIENT
  Sex: Female

DRUGS (1)
  1. RISPERDAL [Suspect]
     Indication: DEPRESSION

REACTIONS (4)
  - INFERTILITY FEMALE [None]
  - MEDICATION ERROR [None]
  - PREMATURE MENOPAUSE [None]
  - WEIGHT INCREASED [None]
